FAERS Safety Report 4715027-X (Version None)
Quarter: 2005Q3

REPORT INFORMATION
  Report Type: 
  Country: None (occurrence: None)
  Receive Date: 20050715
  Receipt Date: 20050620
  Transmission Date: 20060218
  Serious: Yes (Hospitalization, Disabling)
  Sender: FDA-Public Use
  Company Number: PHHO2005JP10208

PATIENT
  Age: 67 Year
  Sex: Male

DRUGS (11)
  1. DIOVAN [Suspect]
     Indication: HYPERTENSION
     Dosage: 80 MG, QD
     Route: 048
     Dates: start: 20030331
  2. GASLON [Concomitant]
     Indication: GASTRITIS
     Dosage: 4 MG, QD
     Route: 048
     Dates: start: 20030331
  3. ASPIRIN [Concomitant]
     Indication: CEREBRAL INFARCTION
     Dosage: 100 MG, QD
     Route: 048
     Dates: start: 20030331
  4. GLUCOBAY [Concomitant]
     Indication: DIABETES MELLITUS
     Dosage: 300MG
     Route: 048
     Dates: start: 20030602
  5. GLUCOBAY [Concomitant]
     Dosage: 150 MG, QD
     Route: 048
     Dates: start: 20030331
  6. LIVALO KOWA [Concomitant]
     Indication: HYPERCHOLESTEROLAEMIA
     Dates: start: 20041007
  7. WARFARIN [Concomitant]
     Dosage: 2 MG
     Route: 048
     Dates: start: 20041028
  8. ARTIST [Concomitant]
     Indication: CARDIAC FAILURE
     Dosage: 5 MG
     Route: 048
     Dates: start: 20041116
  9. LASIX [Concomitant]
     Indication: CARDIAC FAILURE
     Dosage: 40 MG
     Route: 048
     Dates: start: 20041010
  10. ALDACTONE [Concomitant]
     Indication: CARDIAC FAILURE
     Dosage: 25 MG
     Route: 048
     Dates: start: 20041010
  11. AMARYL [Concomitant]
     Indication: DIABETES MELLITUS
     Dosage: 4 MG, 2 MG
     Route: 048
     Dates: start: 20041013

REACTIONS (5)
  - ACUTE MYOCARDIAL INFARCTION [None]
  - ARTERIAL OCCLUSIVE DISEASE [None]
  - CARDIAC FAILURE [None]
  - CHEST PAIN [None]
  - CORONARY ANGIOPLASTY [None]
